FAERS Safety Report 5958383-7 (Version None)
Quarter: 2008Q4

REPORT INFORMATION
  Report Type: 
  Country: None (occurrence: None)
  Receive Date: 20081119
  Receipt Date: 20081110
  Transmission Date: 20090506
  Serious: Yes (Hospitalization)
  Sender: FDA-Public Use
  Company Number: DE-ASTRAZENECA-2008PK02446

PATIENT
  Age: 79 Year
  Sex: Female
  Weight: 66.3 kg

DRUGS (10)
  1. SEROQUEL [Suspect]
     Route: 048
     Dates: start: 20080909, end: 20080909
  2. SEROQUEL [Suspect]
     Route: 048
     Dates: start: 20080910, end: 20080910
  3. RAMIPRIL [Concomitant]
     Route: 048
  4. BISOPROLOL FUMARATE [Concomitant]
     Route: 048
  5. TORSEMIDE [Concomitant]
     Route: 048
  6. LEVOTHYROXINE SODIUM [Concomitant]
     Route: 048
  7. NOVALGIN [Concomitant]
  8. DOMINAL [Concomitant]
     Route: 048
  9. RISPERDAL [Concomitant]
     Route: 048
     Dates: start: 20080801, end: 20080918
  10. RISPERDAL [Concomitant]
     Route: 048
     Dates: start: 20080919, end: 20080922

REACTIONS (2)
  - DERMATITIS ALLERGIC [None]
  - RASH [None]
